FAERS Safety Report 7330336-6 (Version None)
Quarter: 2011Q1

REPORT INFORMATION
  Report Type: 
  Country: None (occurrence: None)
  Receive Date: 20110304
  Receipt Date: 20110224
  Transmission Date: 20110831
  Serious: Yes (Hospitalization)
  Sender: FDA-Public Use
  Company Number: US-BIOGENIDEC-2010BI040018

PATIENT
  Age: 42 Year
  Sex: Female

DRUGS (22)
  1. EFFEXOR [Concomitant]
     Indication: PAIN
     Dates: start: 20100101
  2. ASPIRIN [Concomitant]
  3. LIDODERM [Concomitant]
     Route: 062
  4. NEXIUM [Concomitant]
  5. TYSABRI [Suspect]
     Indication: MULTIPLE SCLEROSIS
     Route: 042
     Dates: start: 20100312
  6. FENTANYL-100 [Concomitant]
     Route: 062
  7. TRAMADOL HCL [Concomitant]
  8. AMPYRA [Concomitant]
  9. REMERON [Concomitant]
  10. SPIRONOLACTONE [Concomitant]
  11. NORVASC [Concomitant]
  12. ZANAFLEX [Concomitant]
  13. ADVAIR DISKUS 100/50 [Concomitant]
  14. FLONASE [Concomitant]
  15. SENNA [Concomitant]
  16. VYVANSE [Concomitant]
     Indication: FATIGUE
  17. NUVIGIL [Concomitant]
     Indication: FATIGUE
  18. NUVIGIL [Concomitant]
  19. ALBUTEROL [Concomitant]
  20. COZAAR [Concomitant]
  21. TOPROL-XL [Concomitant]
  22. XYZAL [Concomitant]

REACTIONS (16)
  - URINARY TRACT INFECTION [None]
  - SINUSITIS [None]
  - HEADACHE [None]
  - WEIGHT DECREASED [None]
  - CONTUSION [None]
  - MOBILITY DECREASED [None]
  - HYPOAESTHESIA FACIAL [None]
  - ADVERSE DRUG REACTION [None]
  - PAIN [None]
  - FATIGUE [None]
  - FALL [None]
  - NASOPHARYNGITIS [None]
  - EYE PAIN [None]
  - BLADDER DISORDER [None]
  - MULTIPLE SCLEROSIS RELAPSE [None]
  - CONVERSION DISORDER [None]
